FAERS Safety Report 9580787 (Version 1)
Quarter: 2013Q4

REPORT INFORMATION
  Report Type: Spontaneous
  Country: US (occurrence: US)
  Receive Date: 20131002
  Receipt Date: 20131002
  Transmission Date: 20140711
  Serious: No
  Sender: FDA-Public Use
  Company Number: US-TEVA-434604USA

PATIENT
  Sex: Male

DRUGS (2)
  1. QNASL [Suspect]
     Indication: SINUS DISORDER
  2. PATADAY [Concomitant]
     Indication: SINUS DISORDER

REACTIONS (3)
  - Pain [Unknown]
  - Cough [Unknown]
  - Drug effect decreased [Unknown]
